FAERS Safety Report 12497219 (Version 1)
Quarter: 2016Q2

REPORT INFORMATION
  Report Type: Spontaneous
  Country: BR (occurrence: BR)
  Receive Date: 20160624
  Receipt Date: 20160624
  Transmission Date: 20160815
  Serious: Yes (Other)
  Sender: FDA-Public Use
  Company Number: PHHY2016BR085846

PATIENT
  Age: 61 Year
  Sex: Female

DRUGS (4)
  1. ONBREZ BREEZHALER [Suspect]
     Active Substance: INDACATEROL
     Indication: PRODUCT USED FOR UNKNOWN INDICATION
     Dosage: 1 DF, QD
     Route: 055
  2. DIOVAN AMLO FIX [Suspect]
     Active Substance: AMLODIPINE\VALSARTAN
     Indication: HYPERTENSION
     Dosage: 1 DF, QD (IN THE MORNING)
     Route: 065
  3. SIMVASTATIN. [Concomitant]
     Active Substance: SIMVASTATIN
     Indication: BLOOD TRIGLYCERIDES INCREASED
     Dosage: 1 DF, UNK
     Route: 065
  4. TYLENOL [Concomitant]
     Active Substance: ACETAMINOPHEN
     Indication: PAIN
     Dosage: UNK UNK, PRN
     Route: 065

REACTIONS (3)
  - Cough [Recovered/Resolved]
  - Pneumonia [Unknown]
  - Chest pain [Unknown]
